FAERS Safety Report 22609799 (Version 1)
Quarter: 2023Q2

REPORT INFORMATION
  Report Type: Spontaneous
  Country: US (occurrence: None)
  Receive Date: 20230615
  Receipt Date: 20230615
  Transmission Date: 20230722
  Serious: Yes (Other)
  Sender: FDA-Public Use
  Company Number: None

PATIENT
  Age: 72 Year
  Sex: Male
  Weight: 102.6 kg

DRUGS (16)
  1. OZEMPIC [Suspect]
     Active Substance: SEMAGLUTIDE
     Indication: Diabetes mellitus
     Dates: start: 20230511
  2. TRULICITY [Suspect]
     Active Substance: DULAGLUTIDE
  3. METFORMIN [Concomitant]
     Active Substance: METFORMIN HYDROCHLORIDE
  4. JARDIANCE [Concomitant]
     Active Substance: EMPAGLIFLOZIN
  5. GEMTESA [Suspect]
     Active Substance: VIBEGRON
  6. CARVEDILOL [Concomitant]
     Active Substance: CARVEDILOL
  7. ATORVASTATIN [Concomitant]
     Active Substance: ATORVASTATIN
  8. COLESTIPOL [Concomitant]
     Active Substance: COLESTIPOL
  9. OXCARBAZEPINE [Concomitant]
     Active Substance: OXCARBAZEPINE
  10. ANORO ELLIPTA [Concomitant]
     Active Substance: UMECLIDINIUM BROMIDE\VILANTEROL TRIFENATATE
  11. TAMOXIFEN [Concomitant]
     Active Substance: TAMOXIFEN
  12. XARELTO [Concomitant]
     Active Substance: RIVAROXABAN
  13. DONEPEZIL [Concomitant]
     Active Substance: DONEPEZIL
  14. METAMUCIL [Concomitant]
     Active Substance: PLANTAGO SEED
  15. QUETIAPINE [Concomitant]
     Active Substance: QUETIAPINE
  16. ESCITALOPRAM [Concomitant]
     Active Substance: ESCITALOPRAM OXALATE

REACTIONS (4)
  - Product substitution issue [None]
  - Diarrhoea [None]
  - Vomiting [None]
  - Therapy change [None]

NARRATIVE: CASE EVENT DATE: 20230610
